FAERS Safety Report 6971991-X (Version None)
Quarter: 2010Q3

REPORT INFORMATION
  Report Type: 
  Country: None (occurrence: None)
  Receive Date: 20100908
  Receipt Date: 20100824
  Transmission Date: 20110219
  Serious: Yes (Death)
  Sender: FDA-Public Use
  Company Number: GB-MYLANLABS-2010S1015525

PATIENT
  Age: 25 Year
  Sex: Female

DRUGS (12)
  1. FLUOXETINE [Suspect]
     Indication: PRODUCT USED FOR UNKNOWN INDICATION
     Route: 048
     Dates: start: 20081209, end: 20081209
  2. TEMAZEPAM [Suspect]
     Indication: PRODUCT USED FOR UNKNOWN INDICATION
     Route: 048
     Dates: start: 20081209, end: 20081209
  3. ALCOHOL [Suspect]
     Indication: PRODUCT USED FOR UNKNOWN INDICATION
     Route: 048
     Dates: start: 20081209, end: 20081209
  4. CIPRALEX [Suspect]
     Indication: ANXIETY
     Route: 048
     Dates: start: 20081203, end: 20081209
  5. CIPRALEX [Suspect]
     Indication: DEPRESSION
     Route: 048
     Dates: start: 20081203, end: 20081209
  6. CIPRALEX [Suspect]
     Route: 048
     Dates: start: 20080301, end: 20080701
  7. CIPRALEX [Suspect]
     Route: 048
     Dates: start: 20080301, end: 20080701
  8. CIPRALEX [Suspect]
     Route: 048
     Dates: start: 20081209, end: 20081209
  9. CIPRALEX [Suspect]
     Route: 048
     Dates: start: 20081209, end: 20081209
  10. IBUPROFEN [Suspect]
     Indication: PRODUCT USED FOR UNKNOWN INDICATION
     Route: 048
     Dates: start: 20081209, end: 20081209
  11. NORTRIPTYLINE HCL [Suspect]
     Indication: PRODUCT USED FOR UNKNOWN INDICATION
     Route: 048
     Dates: start: 20081209, end: 20081209
  12. OXAZEPAM [Suspect]
     Indication: PRODUCT USED FOR UNKNOWN INDICATION
     Route: 048
     Dates: start: 20081209, end: 20081209

REACTIONS (2)
  - COMPLETED SUICIDE [None]
  - INTENTIONAL OVERDOSE [None]
